FAERS Safety Report 4734491-3 (Version None)
Quarter: 2005Q3

REPORT INFORMATION
  Report Type: 
  Country: None (occurrence: None)
  Receive Date: 20050729
  Receipt Date: 20050721
  Transmission Date: 20060218
  Serious: Yes (Death, Other)
  Sender: FDA-Public Use
  Company Number: USA-2005-0020523

PATIENT
  Age: 17 Year
  Sex: Male

DRUGS (5)
  1. OXYCONTIN [Suspect]
  2. ETHANOL (ETHANOL) [Suspect]
  3. CITALOPRAM (CTIALOPRAM) [Suspect]
  4. CAFFEINE (CAFFEINE) [Suspect]
  5. NICOTINE [Suspect]

REACTIONS (10)
  - CARDIAC FAILURE [None]
  - FOAMING AT MOUTH [None]
  - LOSS OF CONSCIOUSNESS [None]
  - MUSCLE RIGIDITY [None]
  - OVERDOSE [None]
  - PERIPHERAL COLDNESS [None]
  - POLYSUBSTANCE ABUSE [None]
  - PULMONARY OEDEMA [None]
  - PUPIL FIXED [None]
  - RESPIRATORY FAILURE [None]
